FAERS Safety Report 24842901 (Version 2)
Quarter: 2025Q1

REPORT INFORMATION
  Report Type: Report from Study
  Country: CA (occurrence: CA)
  Receive Date: 20250115
  Receipt Date: 20250203
  Transmission Date: 20250409
  Serious: Yes (Disabling, Other)
  Sender: JOHNSON AND JOHNSON
  Company Number: CA-JNJFOC-20240618345

PATIENT
  Age: 53 Year
  Sex: Female

DRUGS (4)
  1. SIMPONI [Suspect]
     Active Substance: GOLIMUMAB
     Indication: Rheumatoid arthritis
     Route: 058
     Dates: start: 20210712
  2. METHOTREXATE [Concomitant]
     Active Substance: METHOTREXATE
  3. ONDANSETRON [Concomitant]
     Active Substance: ONDANSETRON
  4. CELEBREX [Concomitant]
     Active Substance: CELECOXIB

REACTIONS (7)
  - Systemic lupus erythematosus [Unknown]
  - Fibromyalgia [Unknown]
  - Arthralgia [Not Recovered/Not Resolved]
  - Insomnia [Unknown]
  - Brain fog [Unknown]
  - Menopause [Unknown]
  - Weight increased [Unknown]
